FAERS Safety Report 6955628-1 (Version None)
Quarter: 2010Q3

REPORT INFORMATION
  Report Type: 
  Country: None (occurrence: None)
  Receive Date: 20100830
  Receipt Date: 20100821
  Transmission Date: 20110219
  Serious: Yes (Other)
  Sender: FDA-Public Use
  Company Number: US-PFIZER INC-2010102995

PATIENT
  Sex: Male
  Weight: 113 kg

DRUGS (9)
  1. LIPITOR [Suspect]
     Indication: BLOOD CHOLESTEROL INCREASED
     Dosage: 80 MG, DAILY
     Route: 048
  2. LIPITOR [Suspect]
     Dosage: 80 MG, UNK
  3. LEVOTHYROXINE [Concomitant]
     Indication: THYROID DISORDER
     Dosage: 0.1 MG, UNK
  4. ATENOLOL [Concomitant]
     Dosage: 50 MG, 2X/DAY
  5. GLYBURIDE [Concomitant]
     Dosage: 10 MG, 2X/DAY
  6. VITAMIN D3 [Concomitant]
     Dosage: 1000 UNITS, DAILY
  7. CYANOCOBALAMIN [Concomitant]
     Dosage: 500 I?G, DAILY
     Route: 048
  8. ALPRAZOLAM [Concomitant]
     Indication: PAIN
     Dosage: 4 MG, DAILY
  9. COLECALCIFEROL [Concomitant]
     Dosage: 400,000 UNITS, UNK

REACTIONS (5)
  - BLOOD CHOLESTEROL INCREASED [None]
  - BLOOD TRIGLYCERIDES INCREASED [None]
  - HIGH DENSITY LIPOPROTEIN DECREASED [None]
  - INFLAMMATION [None]
  - LOW DENSITY LIPOPROTEIN INCREASED [None]
